FAERS Safety Report 14782226 (Version 5)
Quarter: 2018Q2

REPORT INFORMATION
  Report Type: Spontaneous
  Country: US (occurrence: US)
  Receive Date: 20180420
  Receipt Date: 20180614
  Transmission Date: 20180711
  Serious: Yes (Disabling, Other)
  Sender: FDA-Public Use
  Company Number: US-009507513-1804USA007755

PATIENT
  Age: 63 Year
  Sex: Female

DRUGS (3)
  1. FOSAMAX [Suspect]
     Active Substance: ALENDRONATE SODIUM
     Dosage: PROLONGED THERAPY
     Route: 048
  2. MELOXICAM. [Suspect]
     Active Substance: MELOXICAM
     Dosage: PROLONGED THERAPY
  3. TRIAMTERENE. [Suspect]
     Active Substance: TRIAMTERENE
     Dosage: PROLONGED THERAPY

REACTIONS (1)
  - Renal failure [Not Recovered/Not Resolved]
